FAERS Safety Report 8222752-5 (Version None)
Quarter: 2012Q1

REPORT INFORMATION
  Report Type: 
  Country: None (occurrence: None)
  Receive Date: 20120320
  Receipt Date: 20120319
  Transmission Date: 20120608
  Serious: Yes (Disabling, Other)
  Sender: FDA-Public Use
  Company Number: US-PFIZER INC-2012037031

PATIENT
  Sex: Female

DRUGS (6)
  1. ELAVIL [Concomitant]
     Indication: NEURALGIA
     Dosage: 50 MG, AS NEEDED
  2. LYRICA [Suspect]
     Dosage: 75 MG, AT BEDTIME
     Dates: start: 20120119
  3. LYRICA [Suspect]
     Indication: NEURALGIA
     Dosage: 75 MG, 3X/DAY
     Dates: end: 20120119
  4. BACLOFEN [Concomitant]
     Indication: NEURALGIA
     Dosage: 10 MG, UNK
  5. CARBATROL [Concomitant]
     Indication: NEURALGIA
     Dosage: 400 MG, 2X/DAY
  6. LYRICA [Suspect]
     Dosage: 150 MG, Q.A.M.
     Dates: start: 20120119

REACTIONS (5)
  - DRUG INEFFECTIVE [None]
  - IMPAIRED WORK ABILITY [None]
  - DIZZINESS [None]
  - SOMNOLENCE [None]
  - PAIN [None]
